FAERS Safety Report 8584562-9 (Version None)
Quarter: 2012Q3

REPORT INFORMATION
  Report Type: 
  Country: None (occurrence: None)
  Receive Date: 20120810
  Receipt Date: 20120719
  Transmission Date: 20120928
  Serious: No
  Sender: FDA-Public Use
  Company Number: US-009507513-2012SP032501

PATIENT

DRUGS (3)
  1. PEG-INTRON [Suspect]
     Indication: HEPATITIS C
     Dosage: 150 ?G, QW
     Route: 059
     Dates: start: 20120501
  2. TYLENOL [Concomitant]
  3. ATENOLOL [Concomitant]

REACTIONS (4)
  - DRUG DOSE OMISSION [None]
  - VISION BLURRED [None]
  - NASOPHARYNGITIS [None]
  - NASAL CONGESTION [None]
